FAERS Safety Report 9760393 (Version 2)
Quarter: 2013Q4

REPORT INFORMATION
  Report Type: Spontaneous
  Country: US (occurrence: US)
  Receive Date: 20131216
  Receipt Date: 20131216
  Transmission Date: 20140711
  Serious: Yes (Other)
  Sender: FDA-Public Use
  Company Number: US-GILEAD-2010-0027952

PATIENT
  Age: 50 Year
  Sex: Female

DRUGS (6)
  1. LETAIRIS [Suspect]
     Indication: PULMONARY ARTERIAL HYPERTENSION
     Route: 048
     Dates: start: 20091230, end: 20100317
  2. FUROSEMIDE [Concomitant]
  3. BENZONATATE [Concomitant]
  4. NEXIUM [Concomitant]
  5. IBUPROFEN [Concomitant]
  6. POTASSIUM CHLORIDE [Concomitant]

REACTIONS (1)
  - Hepatic enzyme increased [Unknown]
